FAERS Safety Report 9607440 (Version 1)
Quarter: 2013Q4

REPORT INFORMATION
  Report Type: Spontaneous
  Country: US (occurrence: None)
  Receive Date: 20131007
  Receipt Date: 20131007
  Transmission Date: 20140711
  Serious: Yes (Hospitalization)
  Sender: FDA-Public Use
  Company Number: DQ-50-1023-00

PATIENT
  Age: 34 Year
  Sex: Female

DRUGS (7)
  1. ALBUTEROL SULFATE [Suspect]
     Indication: BRONCHITIS
     Dosage: INHALED 2 PUFFS (180 UG)
  2. ALBUTEROL SULFATE [Suspect]
     Indication: ATYPICAL PNEUMONIA
     Dosage: INHALED 2 PUFFS (180 UG)
  3. FLUOXETINE [Concomitant]
  4. AMITRIPTYLINE [Concomitant]
  5. SPIRONOLACTONE [Concomitant]
  6. CEFIXIME [Concomitant]
  7. METHYLPREDNISOLONE [Concomitant]

REACTIONS (3)
  - Paralysis [None]
  - Hypokalaemia [None]
  - Condition aggravated [None]
